FAERS Safety Report 4392329-0 (Version None)
Quarter: 2004Q3

REPORT INFORMATION
  Report Type: 
  Country: None (occurrence: None)
  Receive Date: 20040702
  Receipt Date: 20040623
  Transmission Date: 20050211
  Serious: Yes (Hospitalization, Other)
  Sender: FDA-Public Use
  Company Number: US-JNJFOC-20040501139

PATIENT
  Age: 71 Year
  Sex: Female

DRUGS (21)
  1. DURAGESIC [Suspect]
     Indication: PAIN
     Dosage: 50 UG/HR, TRANSDERMAL
     Route: 062
     Dates: start: 20031223, end: 20040113
  2. LORTAB [Suspect]
     Indication: PAIN
     Dosage: ORAL
     Route: 048
     Dates: end: 20040113
  3. DARVOCET [Suspect]
     Indication: ARTHRITIS
     Dosage: 4 IN 24 HOUR, ORAL
     Route: 048
     Dates: end: 20040113
  4. GLUCOPHAGE [Concomitant]
  5. SYNTHROID [Concomitant]
  6. TAGAMET [Concomitant]
  7. DITROPAN [Concomitant]
  8. PHENERGAN [Concomitant]
  9. NEURONTIN [Concomitant]
  10. ALBUTEROL [Concomitant]
  11. SEROQUEL [Concomitant]
  12. NOLVADEX [Concomitant]
  13. ATENOLOL [Concomitant]
  14. LASIX [Concomitant]
  15. CELEXA [Concomitant]
  16. KLOR-CON [Concomitant]
  17. CALTRATE WITH VITAMIN D (LEKOVIT CA) [Concomitant]
  18. MIACALCIN [Concomitant]
  19. DOVONEX (CALCIPOTRIOL) [Concomitant]
  20. DIPROLENE (BETAMETHASONE DIPROPIONATE) [Concomitant]
  21. ATIVAN [Concomitant]

REACTIONS (25)
  - ABDOMINAL DISTENSION [None]
  - BLOOD ALBUMIN DECREASED [None]
  - BLOOD PRESSURE DIASTOLIC INCREASED [None]
  - BODY TEMPERATURE INCREASED [None]
  - CONSTIPATION [None]
  - DISCOMFORT [None]
  - DRUG ABUSER [None]
  - DRUG DEPENDENCE [None]
  - DRUG SCREEN POSITIVE [None]
  - DRUG WITHDRAWAL SYNDROME [None]
  - FALL [None]
  - GLYCOSYLATED HAEMOGLOBIN INCREASED [None]
  - HAEMATOCRIT DECREASED [None]
  - HAEMOGLOBIN DECREASED [None]
  - LENTICULAR OPACITIES [None]
  - MENTAL IMPAIRMENT [None]
  - OVERDOSE [None]
  - PHARMACEUTICAL PRODUCT COMPLAINT [None]
  - PSORIASIS [None]
  - PUBIC RAMI FRACTURE [None]
  - PYREXIA [None]
  - RASH ERYTHEMATOUS [None]
  - SKIN LESION [None]
  - THROMBOCYTOPENIA [None]
  - VAGINAL MYCOSIS [None]
